FAERS Safety Report 23047282 (Version 1)
Quarter: 2023Q4

REPORT INFORMATION
  Report Type: Report from Study
  Country: US (occurrence: US)
  Receive Date: 20231009
  Receipt Date: 20231009
  Transmission Date: 20240110
  Serious: Yes (Other)
  Sender: FDA-Public Use
  Company Number: US-ABBVIE-4713639

PATIENT
  Sex: Female

DRUGS (2)
  1. RINVOQ [Suspect]
     Active Substance: UPADACITINIB
     Indication: Rheumatoid arthritis
     Route: 048
     Dates: start: 20211028
  2. RINVOQ [Suspect]
     Active Substance: UPADACITINIB
     Indication: Rheumatoid arthritis
     Route: 048

REACTIONS (7)
  - Inguinal hernia [Unknown]
  - Umbilical hernia [Unknown]
  - Ovarian cyst [Unknown]
  - Bone lesion [Unknown]
  - Blood bilirubin increased [Unknown]
  - Arthralgia [Not Recovered/Not Resolved]
  - Femoral hernia [Unknown]

NARRATIVE: CASE EVENT DATE: 20230101
